FAERS Safety Report 8605397-4 (Version None)
Quarter: 2012Q3

REPORT INFORMATION
  Report Type: 
  Country: None (occurrence: None)
  Receive Date: 20120820
  Receipt Date: 20120810
  Transmission Date: 20120928
  Serious: Yes (Other)
  Sender: FDA-Public Use
  Company Number: US-CELGENEUS-163-21880-12070865

PATIENT
  Age: 62 Year
  Sex: Female
  Weight: 48.1 kg

DRUGS (13)
  1. KAY CIEL DURA-TABS [Concomitant]
     Route: 048
  2. LOPRESSOR [Concomitant]
     Route: 048
  3. REVLIMID [Suspect]
     Dosage: 5 MILLIGRAM
     Route: 048
     Dates: start: 20120118, end: 20120608
  4. ATIVAN [Concomitant]
     Route: 048
  5. REVLIMID [Suspect]
     Indication: MULTIPLE MYELOMA
     Route: 048
     Dates: start: 20100401, end: 20100901
  6. ZOFRAN [Concomitant]
     Route: 048
  7. ACYCLOVIR [Concomitant]
     Route: 048
  8. CALCIUM CARBONATE ANTACID [Concomitant]
     Route: 048
  9. DURAGESIC-100 [Concomitant]
     Route: 061
  10. SENOKOT [Concomitant]
     Route: 048
  11. PENTAMIDINE [Concomitant]
     Route: 055
  12. NEXIUM [Concomitant]
     Route: 048
  13. EFFEXOR [Concomitant]
     Route: 048

REACTIONS (1)
  - ENDOMETRIAL CANCER STAGE III [None]
